FAERS Safety Report 24880161 (Version 1)
Quarter: 2025Q1

REPORT INFORMATION
  Report Type: Spontaneous
  Country: US (occurrence: None)
  Receive Date: 20250123
  Receipt Date: 20250123
  Transmission Date: 20250409
  Serious: Yes (Disabling)
  Sender: FDA-CTU
  Company Number: None

PATIENT
  Age: 41 Year
  Sex: Female
  Weight: 57.6 kg

DRUGS (7)
  1. XDEMVY [Suspect]
     Active Substance: LOTILANER
     Indication: Dry eye
     Dosage: 1 DROP TWICE A DAY OPHTHALMIC
     Route: 047
     Dates: start: 20241230, end: 20250113
  2. XIIDRA [Concomitant]
     Active Substance: LIFITEGRAST
  3. ORACEA [Concomitant]
     Active Substance: DOXYCYCLINE
  4. PEPCID [Concomitant]
     Active Substance: FAMOTIDINE
  5. SOOLANTRA [Concomitant]
     Active Substance: IVERMECTIN
  6. VITAMINS [Concomitant]
     Active Substance: VITAMINS
  7. Omega-3 capsules [Concomitant]

REACTIONS (1)
  - Vision blurred [None]

NARRATIVE: CASE EVENT DATE: 20250106
